FAERS Safety Report 8399742-5 (Version None)
Quarter: 2012Q2

REPORT INFORMATION
  Report Type: 
  Country: None (occurrence: None)
  Receive Date: 20120531
  Receipt Date: 20120528
  Transmission Date: 20120825
  Serious: Yes (Disabling, Other)
  Sender: FDA-Public Use
  Company Number: JP-PFIZER INC-2012044727

PATIENT
  Age: 86 Year
  Sex: Male

DRUGS (6)
  1. ONON [Concomitant]
     Indication: RHINITIS
     Dosage: 112.5 MG, 2X/DAY
     Route: 048
     Dates: start: 20101225
  2. ALLEGRA [Concomitant]
     Indication: RHINITIS
     Dosage: 60 MG, 2X/DAY
     Route: 048
     Dates: start: 20101218
  3. FENAZOX [Concomitant]
     Dosage: 50 MG, 2X/DAY
     Route: 048
     Dates: start: 20110308
  4. SELBEX [Concomitant]
     Dosage: 50 MG, 2X/DAY
     Route: 048
     Dates: start: 20110308
  5. LYRICA [Suspect]
     Dosage: 50 MG, 2X/DAY
     Route: 048
     Dates: start: 20120107, end: 20120203
  6. LYRICA [Suspect]
     Indication: NEURALGIA
     Dosage: 25 MG, 2X/DAY
     Route: 048
     Dates: start: 20120106, end: 20120106

REACTIONS (5)
  - PERSONALITY CHANGE [None]
  - COGNITIVE DISORDER [None]
  - PAIN [None]
  - DISORIENTATION [None]
  - FEELING ABNORMAL [None]
